FAERS Safety Report 8839288 (Version 1)
Quarter: 2012Q4

REPORT INFORMATION
  Report Type: 
  Country: US (occurrence: US)
  Receive Date: 20121015
  Receipt Date: 20121015
  Transmission Date: 20130627
  Serious: No
  Sender: FDA-Public Use
  Company Number: US-GLAXOSMITHKLINE-A0951245A

PATIENT
  Age: 53 Year
  Sex: Male

DRUGS (2)
  1. DUAC [Suspect]
     Indication: ACNE
     Dosage: 1APP Per day
     Route: 061
     Dates: start: 2005
  2. TAZORAC [Concomitant]

REACTIONS (1)
  - Platelet count decreased [Unknown]
